FAERS Safety Report 5865980-6 (Version None)
Quarter: 2008Q3

REPORT INFORMATION
  Report Type: 
  Country: None (occurrence: None)
  Receive Date: 20080829
  Receipt Date: 20080811
  Transmission Date: 20090109
  Serious: Yes (Other)
  Sender: FDA-Public Use
  Company Number: GB-ABBOTT-08P-167-0473009-00

PATIENT
  Age: 38 Year
  Sex: Male

DRUGS (3)
  1. ERYTHROMYCIN BASE [Suspect]
     Indication: WOUND INFECTION
     Route: 048
     Dates: start: 20080709, end: 20080711
  2. DICLOFENAC DIETHYLAMINE [Concomitant]
     Indication: JOINT SPRAIN
     Dates: start: 20080420
  3. TETANUS ANTIGEN [Concomitant]
     Indication: WOUND INFECTION
     Dates: start: 20080709, end: 20080709

REACTIONS (1)
  - HALLUCINATION, VISUAL [None]
